FAERS Safety Report 21955160 (Version 1)
Quarter: 2023Q1

REPORT INFORMATION
  Report Type: Spontaneous
  Country: US (occurrence: US)
  Receive Date: 20230206
  Receipt Date: 20230206
  Transmission Date: 20230417
  Serious: No
  Sender: FDA-Public Use
  Company Number: US-DECIPHERA PHARMACEUTICALS LLC-2023US000064

PATIENT
  Sex: Female

DRUGS (1)
  1. QINLOCK [Suspect]
     Active Substance: RIPRETINIB
     Indication: Gastrointestinal stromal tumour
     Dosage: 150 MILLIGRAM, QD (3 OF THE 50 MG TABLETS)
     Dates: start: 2021

REACTIONS (2)
  - Melanocytic naevus [Not Recovered/Not Resolved]
  - Nipple disorder [Not Recovered/Not Resolved]

NARRATIVE: CASE EVENT DATE: 20220101
